FAERS Safety Report 6732683-5 (Version None)
Quarter: 2010Q2

REPORT INFORMATION
  Report Type: 
  Country: None (occurrence: None)
  Receive Date: 20100519
  Receipt Date: 20091112
  Transmission Date: 20101027
  Serious: No
  Sender: FDA-Public Use
  Company Number: US-BRISTOL-MYERS SQUIBB COMPANY-14806731

PATIENT
  Age: 62 Year
  Sex: Male

DRUGS (1)
  1. BARACLUDE [Suspect]
     Indication: HEPATITIS B
     Dosage: FOR 3 MONTHS 1189863A3
     Route: 048
     Dates: start: 20090812, end: 20090920

REACTIONS (7)
  - DIZZINESS [None]
  - FATIGUE [None]
  - FEELING COLD [None]
  - HEADACHE [None]
  - HYPERHIDROSIS [None]
  - PALPITATIONS [None]
  - TREMOR [None]
